FAERS Safety Report 11112143 (Version 1)
Quarter: 2015Q2

REPORT INFORMATION
  Report Type: Other
  Country: FR (occurrence: FR)
  Receive Date: 20150514
  Receipt Date: 20150514
  Transmission Date: 20150821
  Serious: Yes (Hospitalization)
  Sender: FDA-Public Use
  Company Number: FR-MYLANLABS-2014SP005347

PATIENT

DRUGS (10)
  1. RIFAMPICIN [Concomitant]
     Active Substance: RIFAMPIN
     Indication: PRODUCT USED FOR UNKNOWN INDICATION
     Dosage: UNK
     Route: 048
     Dates: start: 20140502
  2. TAZOCILLINE [Suspect]
     Active Substance: PIPERACILLIN SODIUM\TAZOBACTAM SODIUM
     Indication: DEVICE RELATED INFECTION
  3. OFLOCET                            /00731801/ [Concomitant]
     Active Substance: OFLOXACIN
     Indication: PRODUCT USED FOR UNKNOWN INDICATION
     Dosage: UNK
     Route: 048
     Dates: start: 20140502
  4. TRIDESONIT [Concomitant]
     Active Substance: DESONIDE
     Indication: ERYTHEMA
     Dosage: UNK
     Dates: start: 20140424
  5. DAFALGAN [Concomitant]
     Active Substance: ACETAMINOPHEN
     Indication: PRODUCT USED FOR UNKNOWN INDICATION
     Dosage: UNK, PRN
  6. TAZOCILLINE [Suspect]
     Active Substance: PIPERACILLIN SODIUM\TAZOBACTAM SODIUM
     Indication: STAPHYLOCOCCAL INFECTION
     Dosage: 4 G, QD
     Route: 042
     Dates: start: 20140414, end: 20140504
  7. ZOLMITRIPTAN. [Concomitant]
     Active Substance: ZOLMITRIPTAN
     Indication: PRODUCT USED FOR UNKNOWN INDICATION
     Dosage: UNK
  8. TEMESTA                            /00273201/ [Concomitant]
     Active Substance: LORAZEPAM
     Indication: PRODUCT USED FOR UNKNOWN INDICATION
     Dosage: UNK, PRN
  9. VANCOMYCINE [Suspect]
     Active Substance: VANCOMYCIN
     Indication: STAPHYLOCOCCAL INFECTION
     Dosage: 3 G, QD
     Route: 042
     Dates: start: 20140414, end: 20140504
  10. VANCOMYCINE [Suspect]
     Active Substance: VANCOMYCIN
     Indication: DEVICE RELATED INFECTION

REACTIONS (3)
  - Drug reaction with eosinophilia and systemic symptoms [Recovered/Resolved]
  - Cholestasis [Recovered/Resolved]
  - Acute kidney injury [Recovering/Resolving]

NARRATIVE: CASE EVENT DATE: 201405
